FAERS Safety Report 7510827-5 (Version None)
Quarter: 2011Q2

REPORT INFORMATION
  Report Type: 
  Country: None (occurrence: None)
  Receive Date: 20110531
  Receipt Date: 20110520
  Transmission Date: 20111010
  Serious: No
  Sender: FDA-Public Use
  Company Number: US-BIOGENIDEC-2011BI004679

PATIENT
  Age: 28 Year
  Sex: Female

DRUGS (1)
  1. TYSABRI [Suspect]
     Indication: MULTIPLE SCLEROSIS
     Route: 042
     Dates: start: 20101004

REACTIONS (9)
  - PAIN [None]
  - MULTIPLE SCLEROSIS RELAPSE [None]
  - HYPOAESTHESIA [None]
  - ABNORMAL SENSATION IN EYE [None]
  - ASTHENOPIA [None]
  - VISUAL ACUITY REDUCED [None]
  - UPPER RESPIRATORY TRACT CONGESTION [None]
  - HEADACHE [None]
  - ARTHRALGIA [None]
